FAERS Safety Report 6638141-0 (Version None)
Quarter: 2010Q1

REPORT INFORMATION
  Report Type: 
  Country: None (occurrence: None)
  Receive Date: 20100317
  Receipt Date: 20100312
  Transmission Date: 20100710
  Serious: Yes (Other)
  Sender: FDA-Public Use
  Company Number: US-GILEAD-2010-0027509

PATIENT
  Sex: Female

DRUGS (1)
  1. LETAIRIS [Suspect]
     Dates: start: 20090115, end: 20100302

REACTIONS (1)
  - RESPIRATORY FAILURE [None]
